FAERS Safety Report 9123326 (Version 2)
Quarter: 2013Q1

REPORT INFORMATION
  Report Type: Report from Study
  Country: FR (occurrence: FR)
  Receive Date: 20130114
  Receipt Date: 20130304
  Transmission Date: 20140127
  Serious: Yes (Hospitalization)
  Sender: FDA-Public Use
  Company Number: FR-CELGENEUS-056-22393-13010808

PATIENT
  Age: 74 Year
  Sex: Male
  Weight: 61 kg

DRUGS (5)
  1. ISTODAX [Suspect]
     Indication: T-CELL LYMPHOMA
     Dosage: 21.6 MILLIGRAM
     Route: 065
     Dates: start: 20121205, end: 20121212
  2. CYCLOPHOSPHAMIDE [Suspect]
     Indication: LYMPHOMA
     Route: 065
     Dates: start: 20121205
  3. ADRIAMYCIN [Suspect]
     Indication: LYMPHOMA
     Route: 065
     Dates: start: 20121205
  4. VINCRISTINE [Suspect]
     Indication: LYMPHOMA
     Route: 065
     Dates: start: 20121205
  5. PREDNISOLONE [Suspect]
     Indication: LYMPHOMA
     Route: 065
     Dates: start: 20121205

REACTIONS (1)
  - Atrial fibrillation [Recovered/Resolved]
